FAERS Safety Report 6390188-8 (Version None)
Quarter: 2009Q4

REPORT INFORMATION
  Report Type: 
  Country: None (occurrence: None)
  Receive Date: 20091005
  Receipt Date: 20091005
  Transmission Date: 20100525
  Serious: Yes (Hospitalization)
  Sender: FDA-Public Use
  Company Number: None

PATIENT
  Age: 81 Year
  Sex: Male
  Weight: 86 kg

DRUGS (1)
  1. MEGESTROL ACETATE [Suspect]
     Indication: APPETITE DISORDER
     Dosage: 400 MG EVERY DAY PO
     Route: 048
     Dates: start: 20090531, end: 20090625

REACTIONS (2)
  - ADRENAL INSUFFICIENCY [None]
  - HYPOTENSION [None]
